FAERS Safety Report 4928440-2 (Version None)
Quarter: 2006Q1

REPORT INFORMATION
  Report Type: 
  Country: None (occurrence: None)
  Receive Date: 20060228
  Receipt Date: 20051215
  Transmission Date: 20060701
  Serious: Yes (Hospitalization)
  Sender: FDA-Public Use
  Company Number: US-MERCK-0512USA02420

PATIENT
  Age: 54 Year
  Sex: Female
  Weight: 84 kg

DRUGS (24)
  1. VIOXX [Suspect]
     Indication: ARTHRITIS
     Route: 048
     Dates: start: 20000108, end: 20000310
  2. VIOXX [Suspect]
     Route: 048
     Dates: start: 20010226, end: 20010517
  3. VIOXX [Suspect]
     Route: 048
     Dates: start: 20010226, end: 20010517
  4. VIOXX [Suspect]
     Route: 048
     Dates: start: 20000108, end: 20000310
  5. VIOXX [Suspect]
     Route: 048
     Dates: start: 20010226, end: 20010517
  6. VIOXX [Suspect]
     Route: 048
     Dates: start: 20010226, end: 20010517
  7. VIOXX [Suspect]
     Route: 048
     Dates: start: 20000108, end: 20000310
  8. VIOXX [Suspect]
     Route: 048
     Dates: start: 20000108, end: 20000310
  9. VIOXX [Suspect]
     Route: 048
     Dates: start: 20000108, end: 20000310
  10. VIOXX [Suspect]
     Route: 048
     Dates: start: 20010226, end: 20010517
  11. VIOXX [Suspect]
     Route: 048
     Dates: start: 20010226, end: 20010517
  12. VIOXX [Suspect]
     Route: 048
     Dates: start: 20000108, end: 20000310
  13. VIOXX [Suspect]
     Indication: PAIN
     Route: 048
     Dates: start: 20000108, end: 20000310
  14. VIOXX [Suspect]
     Route: 048
     Dates: start: 20000108, end: 20000310
  15. VIOXX [Suspect]
     Route: 048
     Dates: start: 20010226, end: 20010517
  16. VIOXX [Suspect]
     Route: 048
     Dates: start: 20010226, end: 20010517
  17. VIOXX [Suspect]
     Route: 048
     Dates: start: 20000108, end: 20000310
  18. VIOXX [Suspect]
     Route: 048
     Dates: start: 20010226, end: 20010517
  19. VIOXX [Suspect]
     Route: 048
     Dates: start: 20010226, end: 20010517
  20. VIOXX [Suspect]
     Route: 048
     Dates: start: 20000108, end: 20000310
  21. VIOXX [Suspect]
     Route: 048
     Dates: start: 20000108, end: 20000310
  22. VIOXX [Suspect]
     Route: 048
     Dates: start: 20010226, end: 20010517
  23. VIOXX [Suspect]
     Route: 048
     Dates: start: 20010226, end: 20010517
  24. VIOXX [Suspect]
     Route: 048
     Dates: start: 20000108, end: 20000310

REACTIONS (3)
  - CARDIAC DISORDER [None]
  - MYOCARDIAL INFARCTION [None]
  - OVERDOSE [None]
